FAERS Safety Report 24230544 (Version 1)
Quarter: 2024Q3

REPORT INFORMATION
  Report Type: Report from Study
  Country: CA (occurrence: CA)
  Receive Date: 20240821
  Receipt Date: 20240821
  Transmission Date: 20241016
  Serious: Yes (Other)
  Sender: Alvotech
  Company Number: CA-JAMP PHARMA CORPORATION-2024-JAM-CA-01553

PATIENT
  Age: 35 Year
  Sex: Male

DRUGS (1)
  1. SIMLANDI [Suspect]
     Active Substance: ADALIMUMAB-RYVK
     Indication: Crohn^s disease
     Dosage: 40 MILLIGRAM, EVERY 2 WEEKS
     Route: 058
     Dates: start: 20240428

REACTIONS (5)
  - Crohn^s disease [Unknown]
  - General physical health deterioration [Unknown]
  - Abdominal pain [Unknown]
  - Arthralgia [Unknown]
  - Mouth ulceration [Unknown]
